FAERS Safety Report 4320857-2 (Version None)
Quarter: 2004Q1

REPORT INFORMATION
  Report Type: 
  Country: None (occurrence: None)
  Receive Date: 20040318
  Receipt Date: 20040315
  Transmission Date: 20041129
  Serious: Yes (Other)
  Sender: FDA-Public Use
  Company Number: HQWYE823815MAR04

PATIENT
  Age: 26 Year
  Sex: Female

DRUGS (1)
  1. CEFSPAN (CEFIXIME, TABLET) [Suspect]
     Dosage: ORAL
     Route: 048
     Dates: start: 20020801, end: 20020901

REACTIONS (2)
  - OCULOMUCOCUTANEOUS SYNDROME [None]
  - STEVENS-JOHNSON SYNDROME [None]
